FAERS Safety Report 4572103-2 (Version None)
Quarter: 2005Q1

REPORT INFORMATION
  Report Type: 
  Country: None (occurrence: None)
  Receive Date: 20050202
  Receipt Date: 20050112
  Transmission Date: 20050727
  Serious: Yes (Hospitalization)
  Sender: FDA-Public Use
  Company Number: USA041082117

PATIENT
  Age: 40 Year
  Sex: Male
  Weight: 114 kg

DRUGS (4)
  1. CYMBALTA [Suspect]
     Indication: MAJOR DEPRESSION
     Dosage: 60 MG DAY
     Dates: start: 20040816, end: 20041022
  2. LUVOX [Concomitant]
  3. ZOMIG [Concomitant]
  4. FLONASE [Concomitant]

REACTIONS (23)
  - ABASIA [None]
  - ABNORMAL BEHAVIOUR [None]
  - BLOOD GLUCOSE INCREASED [None]
  - BLOOD IRON INCREASED [None]
  - CERULOPLASMIN INCREASED [None]
  - CHOLESTASIS [None]
  - CONFUSIONAL STATE [None]
  - DEPRESSION [None]
  - DIFFICULTY IN WALKING [None]
  - DISCOMFORT [None]
  - FEELING ABNORMAL [None]
  - GAIT DISTURBANCE [None]
  - HALLUCINATION, VISUAL [None]
  - HEPATIC ENCEPHALOPATHY [None]
  - HEPATIC TRAUMA [None]
  - INSOMNIA [None]
  - JAUNDICE CHOLESTATIC [None]
  - LYMPHOCYTE PERCENTAGE DECREASED [None]
  - NEUTROPHIL PERCENTAGE INCREASED [None]
  - PRURITUS [None]
  - THERAPY NON-RESPONDER [None]
  - URTICARIA [None]
  - WEIGHT INCREASED [None]
